FAERS Safety Report 10399265 (Version 2)
Quarter: 2014Q3

REPORT INFORMATION
  Report Type: Spontaneous
  Country: US (occurrence: None)
  Receive Date: 20130815
  Receipt Date: 20140815
  Transmission Date: 20150326
  Serious: Yes (Other)
  Sender: FDA-Public Use
  Company Number: ADR-2013-00803

PATIENT
  Sex: Female

DRUGS (2)
  1. ORAL BACLOFEN [Suspect]
     Active Substance: BACLOFEN
  2. LIORESAL [Suspect]
     Active Substance: BACLOFEN
     Indication: MUSCLE SPASTICITY
     Dosage: 174 MCG/DAY; SEE B5

REACTIONS (10)
  - Medical device discomfort [None]
  - Hot flush [None]
  - Dizziness [None]
  - Therapeutic response decreased [None]
  - Implant site pain [None]
  - Cold sweat [None]
  - Implant site infection [None]
  - Muscle spasticity [None]
  - Wound dehiscence [None]
  - Drug withdrawal syndrome [None]
